FAERS Safety Report 14460753 (Version 1)
Quarter: 2018Q1

REPORT INFORMATION
  Report Type: Spontaneous
  Country: US (occurrence: US)
  Receive Date: 20180130
  Receipt Date: 20180130
  Transmission Date: 20180509
  Serious: No
  Sender: FDA-Public Use
  Company Number: US-BAYER-2018-016418

PATIENT
  Age: 84 Year
  Sex: Female
  Weight: 68 kg

DRUGS (2)
  1. FLUID [Concomitant]
     Active Substance: UNSPECIFIED INGREDIENT
     Dosage: UNK
  2. MIRALAX [Suspect]
     Active Substance: POLYETHYLENE GLYCOL 3350
     Indication: GASTROINTESTINAL DISORDER
     Dosage: 17 G, PRN ON AND OFF
     Route: 048
     Dates: start: 20171220, end: 20180120

REACTIONS (6)
  - Faeces soft [Recovered/Resolved]
  - Flatulence [Recovered/Resolved]
  - Product use in unapproved indication [Recovered/Resolved]
  - Faeces soft [Recovered/Resolved]
  - Urine output decreased [Recovered/Resolved]
  - Faeces hard [Recovered/Resolved]

NARRATIVE: CASE EVENT DATE: 20171220
